FAERS Safety Report 26103008 (Version 1)
Quarter: 2025Q4

REPORT INFORMATION
  Report Type: Spontaneous
  Country: US (occurrence: None)
  Receive Date: 20251128
  Receipt Date: 20251128
  Transmission Date: 20260118
  Serious: Yes (Hospitalization, Other)
  Sender: AUROBINDO
  Company Number: US-AUROBINDO-AUR-APL-2018-051678

PATIENT
  Age: 16 Year
  Sex: Male

DRUGS (1)
  1. IBUPROFEN [Suspect]
     Active Substance: IBUPROFEN
     Indication: Humerus fracture
     Dosage: UNK (FOR 2 MONTHS)
     Route: 065

REACTIONS (7)
  - Duodenal ulcer perforation [Recovered/Resolved]
  - Vomiting [Recovered/Resolved]
  - Abdominal pain [Recovered/Resolved]
  - Intentional product misuse [Recovered/Resolved]
  - Peptic ulcer perforation [Recovered/Resolved]
  - Leukocytosis [Recovered/Resolved]
  - Tenderness [Recovered/Resolved]
